FAERS Safety Report 15296605 (Version 1)
Quarter: 2018Q3

REPORT INFORMATION
  Report Type: Spontaneous
  Country: GB (occurrence: GB)
  Receive Date: 20180820
  Receipt Date: 20180820
  Transmission Date: 20181010
  Serious: Yes (Other)
  Sender: FDA-Public Use
  Company Number: PHHY2018GB074248

PATIENT

DRUGS (1)
  1. RITALIN [Suspect]
     Active Substance: METHYLPHENIDATE HYDROCHLORIDE
     Indication: PRODUCT USED FOR UNKNOWN INDICATION
     Route: 065

REACTIONS (10)
  - Eating disorder [Unknown]
  - Peripheral swelling [Not Recovered/Not Resolved]
  - Renal failure [Unknown]
  - Pain in extremity [Unknown]
  - Spinal pain [Unknown]
  - Arthritis [Unknown]
  - Depression [Unknown]
  - Hepatic failure [Unknown]
  - Arthralgia [Unknown]
  - Quality of life decreased [Unknown]

NARRATIVE: CASE EVENT DATE: 2005
